FAERS Safety Report 15878688 (Version 1)
Quarter: 2019Q1

REPORT INFORMATION
  Report Type: Spontaneous
  Country: US (occurrence: US)
  Receive Date: 20190128
  Receipt Date: 20190128
  Transmission Date: 20190417
  Serious: No
  Sender: FDA-Public Use
  Company Number: US-PFIZER INC-2019033421

PATIENT
  Age: 33 Year
  Sex: Female
  Weight: 136.5 kg

DRUGS (3)
  1. ZOLOFT [Suspect]
     Active Substance: SERTRALINE HYDROCHLORIDE
     Dosage: UNK
     Dates: start: 2015
  2. SPIRONOLACTONE. [Concomitant]
     Active Substance: SPIRONOLACTONE
     Indication: POLYCYSTIC OVARIES
     Dosage: 100 MG, 1X/DAY
     Route: 048
  3. SERTRALINE HCL [Suspect]
     Active Substance: SERTRALINE HYDROCHLORIDE
     Indication: ANXIETY
     Dosage: 50 MG, 1X/DAY (ONCE AT NIGHT)
     Route: 048
     Dates: start: 2015

REACTIONS (5)
  - Throat irritation [Unknown]
  - Sleep disorder [Unknown]
  - Blood triglycerides increased [Unknown]
  - Foreign body in respiratory tract [Unknown]
  - Oropharyngeal pain [Unknown]
